FAERS Safety Report 4456954-0 (Version None)
Quarter: 2004Q3

REPORT INFORMATION
  Report Type: 
  Country: None (occurrence: None)
  Receive Date: 20040921
  Receipt Date: 20040913
  Transmission Date: 20050211
  Serious: Yes (Hospitalization)
  Sender: FDA-Public Use
  Company Number: 2004233251JP

PATIENT
  Age: 56 Year
  Sex: Female

DRUGS (3)
  1. AZULFIDINE [Suspect]
     Dosage: 1000MG/DAY ORAL
     Route: 048
     Dates: start: 20040818, end: 20040901
  2. FLUCAM (AMPIROXICAM)CAPSULE [Suspect]
     Dosage: 27MG/DAY ORAL
     Route: 048
     Dates: start: 20040608, end: 20040901
  3. PREDNISOLONE [Concomitant]

REACTIONS (2)
  - LIVER DISORDER [None]
  - RASH [None]
